FAERS Safety Report 13133557 (Version 2)
Quarter: 2017Q1

REPORT INFORMATION
  Report Type: Spontaneous
  Country: AU (occurrence: AU)
  Receive Date: 20170120
  Receipt Date: 20170315
  Transmission Date: 20170428
  Serious: Yes (Other)
  Sender: FDA-Public Use
  Company Number: AU-ASTRAZENECA-2017SE04055

PATIENT
  Age: 26158 Day
  Sex: Female

DRUGS (4)
  1. LYNPARZA [Suspect]
     Active Substance: OLAPARIB
     Indication: OVARIAN CANCER
     Route: 048
     Dates: start: 201606, end: 201612
  2. LYNPARZA [Suspect]
     Active Substance: OLAPARIB
     Indication: BRCA2 GENE MUTATION
     Route: 048
     Dates: start: 201606, end: 201612
  3. LYNPARZA [Suspect]
     Active Substance: OLAPARIB
     Indication: BRCA2 GENE MUTATION
     Route: 048
     Dates: start: 201612
  4. LYNPARZA [Suspect]
     Active Substance: OLAPARIB
     Indication: OVARIAN CANCER
     Route: 048
     Dates: start: 201612

REACTIONS (5)
  - Fatigue [Unknown]
  - Abdominal pain [Unknown]
  - Malignant neoplasm progression [Unknown]
  - Nausea [Unknown]
  - Vomiting [Unknown]

NARRATIVE: CASE EVENT DATE: 20170103
